FAERS Safety Report 13121433 (Version 1)
Quarter: 2017Q1

REPORT INFORMATION
  Report Type: Spontaneous
  Country: US (occurrence: US)
  Receive Date: 20170114
  Receipt Date: 20170114
  Transmission Date: 20170428
  Serious: Yes (Other)
  Sender: FDA-Public Use
  Company Number: None

PATIENT
  Age: 87 Year
  Sex: Female
  Weight: 42.3 kg

DRUGS (1)
  1. RANEXA [Suspect]
     Active Substance: RANOLAZINE

REACTIONS (1)
  - Renal cyst [None]

NARRATIVE: CASE EVENT DATE: 20170112
